FAERS Safety Report 7483600-4 (Version None)
Quarter: 2011Q2

REPORT INFORMATION
  Report Type: 
  Country: None (occurrence: None)
  Receive Date: 20110517
  Receipt Date: 20110506
  Transmission Date: 20111010
  Serious: Yes (Disabling, Other)
  Sender: FDA-Public Use
  Company Number: US-PFIZER INC-US-WYE-H03381508

PATIENT
  Sex: Female
  Weight: 74 kg

DRUGS (1)
  1. PREMARIN [Suspect]
     Indication: HORMONE REPLACEMENT THERAPY
     Dosage: 0.625 UNK, UNK
     Route: 048
     Dates: start: 19850101, end: 20040301

REACTIONS (1)
  - OVARIAN CANCER METASTATIC [None]
